FAERS Safety Report 20873972 (Version 1)
Quarter: 2022Q2

REPORT INFORMATION
  Report Type: Report from Study
  Country: US (occurrence: US)
  Receive Date: 20220525
  Receipt Date: 20220525
  Transmission Date: 20220720
  Serious: Yes (Other)
  Sender: FDA-Public Use
  Company Number: US-BIOGEN-2022BI01124893

PATIENT
  Sex: Female

DRUGS (1)
  1. TECFIDERA [Suspect]
     Active Substance: DIMETHYL FUMARATE
     Indication: Multiple sclerosis
     Route: 065
     Dates: start: 20140722, end: 20220302

REACTIONS (3)
  - Lung neoplasm malignant [Not Recovered/Not Resolved]
  - Tremor [Not Recovered/Not Resolved]
  - Lung disorder [Unknown]

NARRATIVE: CASE EVENT DATE: 20200101
